FAERS Safety Report 15662224 (Version 6)
Quarter: 2019Q1

REPORT INFORMATION
  Report Type: Spontaneous
  Country: BR (occurrence: BR)
  Receive Date: 20181127
  Receipt Date: 20190206
  Transmission Date: 20190417
  Serious: Yes (Hospitalization)
  Sender: FDA-Public Use
  Company Number: BR-SAKK-2018SA321583AA

PATIENT
  Age: 81 Year
  Sex: Male
  Weight: 54 kg

DRUGS (5)
  1. COMBIRON [Concomitant]
     Active Substance: ASCORBIC ACID\FERROUS SULFATE\FOLIC ACID\PYRIDOXINE HYDROCHLORIDE\RIBOFLAVIN\THIAMINE MONONITRATE
     Indication: ANAEMIA
     Dosage: 2 DF, QD
     Route: 048
     Dates: start: 20181104
  2. LANTUS [Suspect]
     Active Substance: INSULIN GLARGINE
     Indication: DIABETES MELLITUS
     Dosage: 28 IU, QD
     Route: 058
  3. GALVUS [Concomitant]
     Active Substance: VILDAGLIPTIN
     Indication: DIABETES MELLITUS
     Dosage: 2 TABLETS DAILY
     Route: 048
     Dates: start: 20181104
  4. ASPIRINA PREVENT [Concomitant]
     Active Substance: ASPIRIN
     Indication: CIRCULATING ANTICOAGULANT
     Dosage: 1 DF, QD
     Route: 048
     Dates: start: 20181031
  5. CLOPIDOGREL BISULFATE. [Concomitant]
     Active Substance: CLOPIDOGREL BISULFATE
     Indication: CIRCULATING ANTICOAGULANT
     Dosage: 1 DF, QD
     Route: 048
     Dates: start: 20181031

REACTIONS (5)
  - Product use issue [Unknown]
  - Amputation [Unknown]
  - Blood glucose increased [Unknown]
  - Expired product administered [Unknown]
  - Asthenia [Unknown]

NARRATIVE: CASE EVENT DATE: 20181117
